FAERS Safety Report 14011914 (Version 1)
Quarter: 2017Q3

REPORT INFORMATION
  Report Type: Spontaneous
  Country: GB (occurrence: GB)
  Receive Date: 20170926
  Receipt Date: 20170926
  Transmission Date: 20171128
  Serious: Yes (Life-Threatening, Hospitalization)
  Sender: FDA-Public Use
  Company Number: GB-SEBELA IRELAND LIMITED-2017SEB00420

PATIENT
  Age: 28 Year
  Sex: Female

DRUGS (3)
  1. HYDROCORTISONE. [Suspect]
     Active Substance: HYDROCORTISONE
     Indication: VOMITING
     Route: 042
  2. CRYSTALLOID FLUIDS [Concomitant]
     Route: 065
  3. ANTIEMETICS [Concomitant]
     Active Substance: UNSPECIFIED INGREDIENT
     Route: 042

REACTIONS (4)
  - Insulin resistance [Recovered/Resolved]
  - Caesarean section [Recovered/Resolved]
  - Ketoacidosis [Recovered/Resolved]
  - Exposure during pregnancy [Recovered/Resolved]
